FAERS Safety Report 9346386 (Version 1)
Quarter: 2013Q2

REPORT INFORMATION
  Report Type: Spontaneous
  Country: BR (occurrence: BR)
  Receive Date: 20130613
  Receipt Date: 20130613
  Transmission Date: 20140414
  Serious: Yes (Death)
  Sender: FDA-Public Use
  Company Number: BR-PFIZER INC-2012068022

PATIENT
  Age: 40 Year
  Sex: Male
  Weight: 74 kg

DRUGS (1)
  1. SUTENT [Suspect]
     Indication: RENAL CELL CARCINOMA
     Dosage: 50 MG, ONE TABLET ONCE A DAY, CYCLE 4 FOR 2
     Route: 048
     Dates: start: 20120201

REACTIONS (6)
  - Death [Fatal]
  - Glossodynia [Unknown]
  - Tongue disorder [Unknown]
  - Skin exfoliation [Unknown]
  - Pruritus genital [Unknown]
  - Hair colour changes [Unknown]
